FAERS Safety Report 5837904-9 (Version None)
Quarter: 2008Q3

REPORT INFORMATION
  Report Type: 
  Country: None (occurrence: None)
  Receive Date: 20080808
  Receipt Date: 20080808
  Transmission Date: 20090109
  Serious: Yes (Hospitalization)
  Sender: FDA-Public Use
  Company Number: PHEH1999US05735

PATIENT
  Sex: Male

DRUGS (3)
  1. PLACEBO PLACEBO [Suspect]
     Dosage: PLACEBO
     Route: 048
     Dates: start: 19980904, end: 19991122
  2. PREDNISONE [Suspect]
     Route: 048
     Dates: start: 19990922
  3. NEORAL [Suspect]
     Route: 048
     Dates: start: 19990329

REACTIONS (1)
  - FUNGAL INFECTION [None]
